FAERS Safety Report 13585936 (Version 2)
Quarter: 2019Q3

REPORT INFORMATION
  Report Type: Spontaneous
  Country: US (occurrence: US)
  Receive Date: 20170526
  Receipt Date: 20190809
  Transmission Date: 20191004
  Serious: Yes (Other)
  Sender: FDA-Public Use
  Company Number: US-PFIZER INC-2016575877

PATIENT
  Age: 82 Year
  Sex: Male

DRUGS (5)
  1. SUTENT [Suspect]
     Active Substance: SUNITINIB MALATE
     Dosage: 25 MG, CYCLIC (TAKE 1 TAB BY MOUTH EACH DAY FOR 14 DAYS OFF 7 AND REPEAT)
     Route: 048
  2. TYLENOL ARTHRITIS PAIN [Concomitant]
     Active Substance: ACETAMINOPHEN
     Dosage: 1300 MG, 3X/DAY
     Route: 048
  3. HYDROCODONE-ACETAMINOPHEN [Concomitant]
     Active Substance: ACETAMINOPHEN\HYDROCODONE
     Indication: PAIN
     Dosage: UNK, AS NEEDED  [ACETAMINOPHEN: 325 MG]/ [HYDROCODONE: 7.5 MG] (Q4H)
     Route: 048
  4. SUTENT [Suspect]
     Active Substance: SUNITINIB MALATE
     Indication: RENAL CELL CARCINOMA
     Dosage: 50 MG, CYCLIC  (DAILY FOR 14 DAYS THEN OFF 7 DAYS AND REPEAT)
  5. OSTEO BI-FLEX [Concomitant]
     Active Substance: CHONDROITIN SULFATE A\GLUCOSAMINE
     Dosage: 1 DF, 3X/DAY, (750-644 MG)
     Route: 048

REACTIONS (1)
  - Arthritis infective [Unknown]
